FAERS Safety Report 6688998-2 (Version None)
Quarter: 2010Q2

REPORT INFORMATION
  Report Type: 
  Country: None (occurrence: None)
  Receive Date: 20100420
  Receipt Date: 20100408
  Transmission Date: 20101027
  Serious: Yes (Hospitalization, Other)
  Sender: FDA-Public Use
  Company Number: PHEH2007US15452

PATIENT
  Sex: Female

DRUGS (19)
  1. ZOMETA [Suspect]
     Dosage: 4 MG
     Route: 042
     Dates: start: 20040820, end: 20060401
  2. ZOMETA [Suspect]
     Dosage: UNK
  3. KLONOPIN [Concomitant]
  4. TAMOXIFEN CITRATE [Concomitant]
     Dosage: UNK
     Dates: start: 20021101
  5. XELODA [Concomitant]
     Dosage: UNK
     Route: 048
     Dates: start: 20050901, end: 20060401
  6. ARIMIDEX [Concomitant]
  7. ADRIAMYCIN PFS [Concomitant]
  8. CYTOXAN [Concomitant]
  9. TAXOL [Concomitant]
  10. RADIATION THERAPY [Concomitant]
     Dosage: UNK
     Dates: start: 20030501
  11. VICODIN [Concomitant]
  12. NORCO [Concomitant]
  13. CHANTIX [Concomitant]
  14. MOBIC [Concomitant]
  15. CLEOCIN [Concomitant]
  16. AMOXICILLIN [Concomitant]
     Dosage: 500 MG, UNK
  17. TORADOL [Concomitant]
  18. LEXAPRO [Concomitant]
  19. CLONAZEPAM [Concomitant]

REACTIONS (43)
  - ANHEDONIA [None]
  - ANXIETY [None]
  - ARTHRALGIA [None]
  - ASTHENIA [None]
  - COMPRESSION FRACTURE [None]
  - COUGH [None]
  - DEEP VEIN THROMBOSIS [None]
  - DEPRESSION [None]
  - DIABETES MELLITUS INADEQUATE CONTROL [None]
  - DRUG DEPENDENCE [None]
  - FEELING ABNORMAL [None]
  - GALLBLADDER CANCER [None]
  - INJURY [None]
  - INTERVERTEBRAL DISC PROTRUSION [None]
  - JAW DISORDER [None]
  - JAW OPERATION [None]
  - JOINT SWELLING [None]
  - LUMBAR SPINAL STENOSIS [None]
  - LYMPHADENOPATHY [None]
  - MALIGNANT NEOPLASM PROGRESSION [None]
  - MENOPAUSE [None]
  - METASTASES TO BONE [None]
  - NASAL CONGESTION [None]
  - NEUROPATHY PERIPHERAL [None]
  - NIGHT SWEATS [None]
  - OOPHORECTOMY [None]
  - ORAL CANDIDIASIS [None]
  - ORAL DISORDER [None]
  - ORAL INFECTION [None]
  - OROPHARYNGEAL PAIN [None]
  - OSTEOCHONDROSIS [None]
  - OSTEONECROSIS [None]
  - OSTEOSCLEROSIS [None]
  - OVARIAN CYST [None]
  - PAIN [None]
  - PAIN IN JAW [None]
  - SPINAL COLUMN STENOSIS [None]
  - THROMBOSIS IN DEVICE [None]
  - TOOTH ABSCESS [None]
  - TOOTH DISORDER [None]
  - TOOTH EXTRACTION [None]
  - TOOTHACHE [None]
  - VIRAL INFECTION [None]
